FAERS Safety Report 8820505 (Version 1)
Quarter: 2012Q4

REPORT INFORMATION
  Report Type: 
  Country: US (occurrence: US)
  Receive Date: 20121002
  Receipt Date: 20121002
  Transmission Date: 20130627
  Serious: No
  Sender: FDA-Public Use
  Company Number: US-COVIDIEN/TYCO HEALTHCARE/MALLINCKRODT-T201102373

PATIENT
  Age: 52 Year
  Sex: Male

DRUGS (6)
  1. EXALGO EXTENDED RELEASE [Suspect]
     Indication: PAIN
     Dosage: 8 mg, qd
     Dates: start: 20111013
  2. LYRICA [Suspect]
     Indication: PRODUCT USED FOR UNKNOWN INDICATION
     Dosage: 1 tab qd for 3 days then 2 tabs qd
     Route: 048
     Dates: start: 20111013, end: 20111017
  3. TIZANIDINE [Suspect]
     Indication: PAIN
     Dosage: 1 tab, bid
     Route: 048
     Dates: start: 20111013
  4. PERCOCET /00867901/ [Concomitant]
     Indication: PAIN
     Dosage: 5 mg, q 12 hrs prn
     Route: 048
     Dates: start: 20110513
  5. PERCOCET /00867901/ [Concomitant]
     Dosage: 10 mg, 1-2 tablets, unk
     Route: 048
     Dates: start: 20111006, end: 20111011
  6. DILAUDID [Concomitant]
     Indication: PAIN
     Dosage: 4 mg, 3-4 tabs qd
     Route: 048
     Dates: start: 201108, end: 20111006

REACTIONS (4)
  - Dysphemia [Not Recovered/Not Resolved]
  - Muscle tightness [Recovering/Resolving]
  - Dizziness [Not Recovered/Not Resolved]
  - Insomnia [Not Recovered/Not Resolved]
